FAERS Safety Report 5840490-0 (Version None)
Quarter: 2008Q3

REPORT INFORMATION
  Report Type: 
  Country: None (occurrence: None)
  Receive Date: 20080807
  Receipt Date: 20080807
  Transmission Date: 20090109
  Serious: Yes (Other)
  Sender: FDA-Public Use
  Company Number: None

PATIENT
  Age: 40 Year
  Sex: Female
  Weight: 52.1637 kg

DRUGS (2)
  1. DUETDHA XANODYNE [Suspect]
     Indication: PRENATAL CARE
     Dosage: 1 QDAY PO
     Route: 048
     Dates: start: 20070301, end: 20070430
  2. DUETDHA XANODYNE [Suspect]
     Indication: VITAMIN SUPPLEMENTATION
     Dosage: 1 QDAY PO
     Route: 048
     Dates: start: 20070301, end: 20070430

REACTIONS (2)
  - DRUG EXPOSURE DURING PREGNANCY [None]
  - EOSINOPHILIC COLITIS [None]
